FAERS Safety Report 11389240 (Version 1)
Quarter: 2015Q3

REPORT INFORMATION
  Report Type: Spontaneous
  Country: US (occurrence: US)
  Receive Date: 20150817
  Receipt Date: 20150817
  Transmission Date: 20151125
  Serious: Yes (Hospitalization, Other)
  Sender: FDA-Public Use
  Company Number: PHEH2015US015334

PATIENT
  Sex: Female

DRUGS (1)
  1. SANDOSTATIN LAR DEPOT [Suspect]
     Active Substance: OCTREOTIDE ACETATE
     Indication: ACROMEGALY
     Dosage: UNK
     Route: 065
     Dates: start: 2001

REACTIONS (10)
  - Migraine [Unknown]
  - Decreased appetite [Unknown]
  - Arthralgia [Unknown]
  - VIIth nerve paralysis [Unknown]
  - Gait disturbance [Unknown]
  - Disturbance in attention [Unknown]
  - Cerebrovascular accident [Unknown]
  - Arthritis [Unknown]
  - Asthenia [Unknown]
  - Heart rate abnormal [Unknown]
